FAERS Safety Report 9173372 (Version 1)
Quarter: 2013Q1

REPORT INFORMATION
  Report Type: Spontaneous
  Country: FR (occurrence: None)
  Receive Date: 20130313
  Receipt Date: 20130313
  Transmission Date: 20140127
  Serious: Yes (Hospitalization)
  Sender: FDA-Public Use
  Company Number: 2013-0382

PATIENT
  Sex: 0

DRUGS (3)
  1. CARFILZOMIB [Suspect]
     Indication: PLASMA CELL MYELOMA
     Dates: start: 20120809, end: 20120817
  2. MELPHALAN (MELPHALAN) (MELPHALAN) [Concomitant]
  3. PREDNISONE (PREDNISONE) (PREDNISONE) [Concomitant]

REACTIONS (3)
  - Weight decreased [None]
  - Nausea [None]
  - Vomiting [None]
